FAERS Safety Report 22183894 (Version 1)
Quarter: 2023Q2

REPORT INFORMATION
  Report Type: Spontaneous
  Country: FR (occurrence: FR)
  Receive Date: 20230406
  Receipt Date: 20230406
  Transmission Date: 20230722
  Serious: Yes (Hospitalization, Other)
  Sender: FDA-Public Use
  Company Number: FR-AFSSAPS-PO2023000326

PATIENT
  Age: 7 Year
  Sex: Female
  Weight: 26 kg

DRUGS (1)
  1. IBUPROFEN [Suspect]
     Active Substance: IBUPROFEN
     Indication: Pain
     Dosage: UNK
     Route: 048
     Dates: start: 20230201, end: 20230202

REACTIONS (1)
  - Peritonsillar abscess [Recovering/Resolving]

NARRATIVE: CASE EVENT DATE: 20230203
